FAERS Safety Report 15506508 (Version 4)
Quarter: 2019Q4

REPORT INFORMATION
  Report Type: Report from Study
  Country: CA (occurrence: CA)
  Receive Date: 20181016
  Receipt Date: 20191014
  Transmission Date: 20200122
  Serious: Yes (Other)
  Sender: FDA-Public Use
  Company Number: CA-SA-2017SA131734

PATIENT
  Age: 38 Year
  Sex: Male

DRUGS (8)
  1. RANITIDINE. [Concomitant]
     Active Substance: RANITIDINE
     Indication: PREMEDICATION
     Dosage: 150 MG,BID
     Route: 048
     Dates: start: 20170712, end: 20170714
  2. PARACETAMOL [Concomitant]
     Active Substance: ACETAMINOPHEN
     Indication: PREMEDICATION
     Dosage: 975 MG,UNK
     Route: 048
     Dates: start: 20170712, end: 20170714
  3. ALEMTUZUMAB [Suspect]
     Active Substance: ALEMTUZUMAB
     Indication: RELAPSING-REMITTING MULTIPLE SCLEROSIS
     Dosage: 12 MG,QD
     Route: 041
     Dates: start: 20170712, end: 20170714
  4. GRAVOL [Concomitant]
     Active Substance: DIMENHYDRINATE
     Indication: PREMEDICATION
     Dosage: 50 MG,UNK
     Route: 048
     Dates: start: 20170712, end: 20170714
  5. BENADRYL [Concomitant]
     Active Substance: DIPHENHYDRAMINE HYDROCHLORIDE
     Indication: PREMEDICATION
     Dosage: UNK UNK,UNK
     Route: 048
     Dates: start: 20170712, end: 20170714
  6. METHYLPREDNISOLONE. [Suspect]
     Active Substance: METHYLPREDNISOLONE
     Indication: PREMEDICATION
     Dosage: 1 G,UNK
     Route: 042
     Dates: start: 20170712, end: 20170714
  7. REACTINE [CETIRIZINE HYDROCHLORIDE] [Concomitant]
     Active Substance: CETIRIZINE HYDROCHLORIDE
     Indication: PREMEDICATION
     Dosage: 10 MG,UNK
     Route: 048
     Dates: start: 20170712, end: 20170714
  8. ACICLOVIR [Concomitant]
     Active Substance: ACYCLOVIR
     Indication: PREMEDICATION
     Dosage: 200 MG,BID
     Route: 048
     Dates: start: 20170712

REACTIONS (28)
  - Asthenia [Not Recovered/Not Resolved]
  - Influenza [Recovered/Resolved]
  - Hypotension [Recovered/Resolved]
  - Alanine aminotransferase decreased [Recovered/Resolved]
  - Anion gap decreased [Recovered/Resolved]
  - Urine analysis abnormal [Unknown]
  - International normalised ratio increased [Not Recovered/Not Resolved]
  - Lymphocyte percentage decreased [Not Recovered/Not Resolved]
  - Neutrophil percentage increased [Recovered/Resolved]
  - Carbon dioxide increased [Recovered/Resolved]
  - Fatigue [Not Recovered/Not Resolved]
  - Activated partial thromboplastin time prolonged [Recovered/Resolved]
  - Tri-iodothyronine free decreased [Recovered/Resolved]
  - Blood alkaline phosphatase decreased [Not Recovered/Not Resolved]
  - Monocyte percentage increased [Not Recovered/Not Resolved]
  - Urine ketone body present [Recovered/Resolved]
  - Anti-thyroid antibody positive [Not Recovered/Not Resolved]
  - Anti-thyroid antibody positive [Recovered/Resolved]
  - Unevaluable event [Not Recovered/Not Resolved]
  - Bradycardia [Recovered/Resolved]
  - Eosinophil percentage increased [Not Recovered/Not Resolved]
  - Red blood cell count decreased [Recovered/Resolved]
  - Blood thyroid stimulating hormone decreased [Recovered/Resolved]
  - Gamma-glutamyltransferase decreased [Recovered/Resolved]
  - Thyroxine free decreased [Recovered/Resolved]
  - Lymphocyte count decreased [Not Recovered/Not Resolved]
  - Protein urine present [Recovered/Resolved]
  - Initial insomnia [Not Recovered/Not Resolved]

NARRATIVE: CASE EVENT DATE: 20170713
